FAERS Safety Report 8024682-0 (Version None)
Quarter: 2012Q1

REPORT INFORMATION
  Report Type: 
  Country: None (occurrence: None)
  Receive Date: 20120105
  Receipt Date: 20111222
  Transmission Date: 20120608
  Serious: Yes (Hospitalization)
  Sender: FDA-Public Use
  Company Number: JP-UCBSA-047928

PATIENT
  Age: 20 Year
  Sex: Male
  Weight: 53 kg

DRUGS (8)
  1. DEPAKENE [Concomitant]
     Dosage: DAILY DOSE:400 MG
     Route: 048
     Dates: start: 20111202
  2. OLOPATADINE HCL [Concomitant]
     Indication: DERMATITIS ATOPIC
     Dosage: DAILY DOSE: 10 MG
     Route: 048
     Dates: start: 20110729, end: 20110101
  3. KEPPRA [Suspect]
     Indication: IDIOPATHIC GENERALISED EPILEPSY
     Route: 048
     Dates: start: 20111104, end: 20111120
  4. DEPAKENE [Concomitant]
     Dosage: DAILY DOSE:600 MG
     Route: 048
     Dates: start: 20111104, end: 20111201
  5. KEPPRA [Suspect]
     Route: 048
     Dates: start: 20111121, end: 20111124
  6. DEPAKENE [Concomitant]
     Indication: IDIOPATHIC GENERALISED EPILEPSY
     Dosage: DAILY DOSE:800 MG
     Route: 048
     Dates: start: 20110311, end: 20111103
  7. CETIRIZINE HCL [Concomitant]
     Indication: DERMATITIS ATOPIC
     Dosage: DAILY DOSE:10 MG
     Route: 048
     Dates: end: 20111126
  8. ZONISAMIDE [Concomitant]
     Indication: IDIOPATHIC GENERALISED EPILEPSY
     Dosage: DAILY DOSE 200 MG
     Route: 048
     Dates: start: 20111128

REACTIONS (2)
  - CONVULSION [None]
  - BLOOD CREATINE PHOSPHOKINASE INCREASED [None]
